FAERS Safety Report 4628838-6 (Version None)
Quarter: 2005Q2

REPORT INFORMATION
  Report Type: 
  Country: None (occurrence: None)
  Receive Date: 20050406
  Receipt Date: 20050325
  Transmission Date: 20051028
  Serious: Yes (Death, Other)
  Sender: FDA-Public Use
  Company Number: 2005017983

PATIENT
  Sex: Male

DRUGS (1)
  1. CELEBREX [Suspect]
     Indication: HIP ARTHROPLASTY
     Dosage: ORAL
     Route: 048

REACTIONS (4)
  - FEELING COLD [None]
  - MYOCARDIAL INFARCTION [None]
  - PRURITUS [None]
  - STRESS [None]
